FAERS Safety Report 18650314 (Version 1)
Quarter: 2020Q4

REPORT INFORMATION
  Report Type: Spontaneous
  Country: US (occurrence: US)
  Receive Date: 20201222
  Receipt Date: 20201222
  Transmission Date: 20210114
  Serious: Yes (Other)
  Sender: FDA-Public Use
  Company Number: US-ASTRAZENECA-2020SF68058

PATIENT
  Age: 726 Month
  Sex: Female
  Weight: 88.5 kg

DRUGS (2)
  1. FASENRA [Suspect]
     Active Substance: BENRALIZUMAB
     Indication: ASTHMA
     Dosage: UNKNOWN DOSE, EVERY EIGHT WEEKS
     Route: 058
     Dates: start: 2018
  2. WARFARIN [Concomitant]
     Active Substance: WARFARIN
     Indication: DEEP VEIN THROMBOSIS
     Route: 048
     Dates: start: 2005

REACTIONS (2)
  - Venous aneurysm [Unknown]
  - Eosinophil count decreased [Unknown]

NARRATIVE: CASE EVENT DATE: 202005
